FAERS Safety Report 19759917 (Version 1)
Quarter: 2021Q3

REPORT INFORMATION
  Report Type: Spontaneous
  Country: US (occurrence: US)
  Receive Date: 20210830
  Receipt Date: 20210830
  Transmission Date: 20211014
  Serious: Yes (Hospitalization, Other)
  Sender: FDA-Public Use
  Company Number: US-EPICPHARMA-US-2021EPCLIT00938

PATIENT
  Age: 45 Year
  Sex: Female

DRUGS (8)
  1. FEXOFENADINE [Concomitant]
     Active Substance: FEXOFENADINE HYDROCHLORIDE
     Indication: PRODUCT USED FOR UNKNOWN INDICATION
     Route: 065
  2. HYDROXYCHLOROQUINE [Interacting]
     Active Substance: HYDROXYCHLOROQUINE
     Indication: RASH
     Route: 065
  3. PREDNISONE. [Interacting]
     Active Substance: PREDNISONE
     Indication: RASH
     Route: 065
  4. CLOBETASOL [Interacting]
     Active Substance: CLOBETASOL
     Indication: RASH
     Route: 065
  5. FLUOXETINE [Concomitant]
     Active Substance: FLUOXETINE HYDROCHLORIDE
     Indication: PRODUCT USED FOR UNKNOWN INDICATION
     Route: 065
  6. PIMECROLIMUS. [Interacting]
     Active Substance: PIMECROLIMUS
     Indication: RASH
     Route: 065
  7. BUPROPION HYDROCHLORIDE. [Suspect]
     Active Substance: BUPROPION HYDROCHLORIDE
     Indication: PRODUCT USED FOR UNKNOWN INDICATION
     Route: 065
  8. KENALOG [Interacting]
     Active Substance: TRIAMCINOLONE ACETONIDE
     Indication: RASH
     Route: 030

REACTIONS (1)
  - Lupus-like syndrome [Recovered/Resolved]
